FAERS Safety Report 16297434 (Version 4)
Quarter: 2019Q2

REPORT INFORMATION
  Report Type: Spontaneous
  Country: DE (occurrence: DE)
  Receive Date: 20190510
  Receipt Date: 20190626
  Transmission Date: 20190711
  Serious: Yes (Other)
  Sender: FDA-Public Use
  Company Number: DE-AUROBINDO-AUR-APL-2019-025099

PATIENT

DRUGS (12)
  1. MAGNESIUM [Concomitant]
     Active Substance: MAGNESIUM
     Indication: PROPHYLAXIS
     Dosage: 250 MILLIGRAM, ONCE A DAY
     Route: 065
     Dates: start: 2015
  2. DENOSUMAB [Concomitant]
     Active Substance: DENOSUMAB
     Indication: METASTASES TO BONE
     Dosage: 120 MILLIGRAM,ONCE A WEEK
     Route: 058
  3. ELIQUIS [Concomitant]
     Active Substance: APIXABAN
     Indication: PRODUCT USED FOR UNKNOWN INDICATION
     Dosage: 1 MILLIGRAM, ONCE A DAY
     Route: 065
     Dates: start: 201710
  4. LETROZOLE. [Suspect]
     Active Substance: LETROZOLE
     Indication: BREAST CANCER METASTATIC
     Dosage: 2.5 MILLIGRAM, ONCE A DAY
     Route: 048
     Dates: start: 20190227
  5. JUTABIS [Concomitant]
     Indication: HYPERTENSION
     Dosage: 1 ONCE A DAY,HALF OF 5 MG, 2X DAILY (MORNING AND EVENING
     Route: 065
     Dates: start: 2015
  6. CALCIMAGON D3 [Concomitant]
     Active Substance: CALCIUM\CHOLECALCIFEROL
     Indication: METASTASES TO BONE
     Dosage: 1000 MILLIGRAM
     Route: 048
     Dates: start: 20190328
  7. ZOPICLONE [Concomitant]
     Active Substance: ZOPICLONE
     Indication: PRODUCT USED FOR UNKNOWN INDICATION
     Dosage: 1 MILLIGRAM, ONCE A DAY
     Route: 065
     Dates: start: 201710
  8. KISQALI [Suspect]
     Active Substance: RIBOCICLIB
     Indication: BREAST CANCER METASTATIC
     Dosage: 600 MILLIGRAM, ONCE A DAY  (SCHEMA 21 DAYS INTAKE, THAN 7 DAYS PAUSE)
     Route: 048
     Dates: start: 20190227, end: 20190523
  9. CANDESARTAN. [Concomitant]
     Active Substance: CANDESARTAN
     Indication: HYPERTENSION
     Dosage: ONE,ONCE A DAY(HALF OF  8 MG, QD 2X DAILY (MORNING AND EVENING)
     Route: 065
     Dates: start: 2016
  10. AMLODIPINE [Concomitant]
     Active Substance: AMLODIPINE BESYLATE
     Indication: HYPERTENSION
     Dosage: 5 MILLIGRAM, ONCE A DAY
     Route: 065
     Dates: start: 2008
  11. TRIMIPRAMIN-NEURAXPHARM [Concomitant]
     Active Substance: TRIMIPRAMINE MALEATE
     Indication: SLEEP DISORDER
     Dosage: 15 GTT IN THE EVENING, 20 GTT AT NIGHT
     Route: 065
     Dates: start: 2016
  12. TORASEMIDE [Concomitant]
     Active Substance: TORSEMIDE
     Indication: PROPHYLAXIS
     Dosage: 5 MILLIGRAM, ONCE A DAY
     Route: 065
     Dates: start: 2017

REACTIONS (5)
  - Pruritus [Not Recovered/Not Resolved]
  - Anaemia [Not Recovered/Not Resolved]
  - Drug eruption [Not Recovered/Not Resolved]
  - Thrombocytopenia [Recovered/Resolved]
  - Leukopenia [Recovered/Resolved]

NARRATIVE: CASE EVENT DATE: 20190313
